FAERS Safety Report 9316403 (Version 3)
Quarter: 2013Q2

REPORT INFORMATION
  Report Type: Spontaneous
  Country: US (occurrence: US)
  Receive Date: 20130530
  Receipt Date: 20130620
  Transmission Date: 20140414
  Serious: Yes (Hospitalization, Other)
  Sender: FDA-Public Use
  Company Number: US-009507513-1305USA016057

PATIENT
  Age: 41 Year
  Sex: Female
  Weight: 77.55 kg

DRUGS (3)
  1. SINGULAIR [Suspect]
     Dosage: UNK
  2. ZETONNA [Suspect]
     Dosage: UNK
     Route: 045
     Dates: start: 201301, end: 20130503
  3. ADVAIR [Suspect]
     Dosage: UNK

REACTIONS (5)
  - Sepsis [Unknown]
  - Septic shock [Unknown]
  - Urosepsis [Unknown]
  - Antibiotic therapy [Unknown]
  - Adrenal insufficiency [Unknown]
